FAERS Safety Report 24384141 (Version 1)
Quarter: 2024Q4

REPORT INFORMATION
  Report Type: Spontaneous
  Country: AU (occurrence: AU)
  Receive Date: 20241001
  Receipt Date: 20241001
  Transmission Date: 20250114
  Serious: Yes (Hospitalization, Other)
  Sender: NOVO NORDISK
  Company Number: AU-NOVOPROD-1287918

PATIENT
  Sex: Female

DRUGS (4)
  1. INSULIN HUMAN [Suspect]
     Active Substance: INSULIN HUMAN
     Dosage: ADJUST THE INSULIN BY TWO UNITS
  2. INSULIN HUMAN [Suspect]
     Active Substance: INSULIN HUMAN
     Dosage: 34 IU, QD (INJECTING 22 UNITS IN THE MORNING AND 12 UNITS AT NIGHT) (RESTARTED)
     Dates: start: 202312
  3. INSULIN HUMAN [Suspect]
     Active Substance: INSULIN HUMAN
     Indication: Type 1 diabetes mellitus
     Dosage: UNK
  4. METFORMIN [Suspect]
     Active Substance: METFORMIN HYDROCHLORIDE
     Indication: Product used for unknown indication
     Dosage: 1500 MG, QD (500MG 2 MORNING AND 1 IN THE EVENING, WITH FOOD)

REACTIONS (9)
  - Nosocomial infection [Unknown]
  - Joint arthroplasty [Unknown]
  - Osteoporosis [Unknown]
  - Fall [Unknown]
  - Lower limb fracture [Unknown]
  - Blood glucose decreased [Unknown]
  - Gluten sensitivity [Unknown]
  - Lactose intolerance [Unknown]
  - Diabetes mellitus inadequate control [Unknown]

NARRATIVE: CASE EVENT DATE: 20230301
